FAERS Safety Report 7180231-0 (Version None)
Quarter: 2010Q4

REPORT INFORMATION
  Report Type: 
  Country: None (occurrence: None)
  Receive Date: 20101221
  Receipt Date: 20101208
  Transmission Date: 20110411
  Serious: Yes (Death, Life-Threatening, Hospitalization, Other)
  Sender: FDA-Public Use
  Company Number: US-CELGENEUS-163-20785-10051025

PATIENT
  Sex: Male
  Weight: 109.87 kg

DRUGS (76)
  1. THALOMID [Suspect]
     Indication: MULTIPLE MYELOMA
     Route: 048
     Dates: start: 20080213, end: 20080226
  2. THALOMID [Suspect]
     Route: 048
     Dates: end: 20091014
  3. THALOMID [Suspect]
     Route: 048
     Dates: start: 20091207, end: 20091215
  4. FLUDARABINE PHOSPHATE [Suspect]
     Route: 065
     Dates: start: 20071008, end: 20071203
  5. TRIMETHOPRIM + SULFAMETHOXAZOLE [Suspect]
     Route: 048
     Dates: start: 20071008, end: 20071203
  6. DEXAMETHASONE [Suspect]
     Route: 048
     Dates: start: 20080213, end: 20080227
  7. DEXAMETHASONE [Suspect]
     Route: 048
     Dates: start: 20091022
  8. ZOLEDRONIC ACID [Suspect]
     Indication: MULTIPLE MYELOMA
     Dosage: 3.5MG-4MG
     Route: 051
     Dates: start: 20080213, end: 20080227
  9. COZAAR [Concomitant]
     Dosage: 50-100MG
     Route: 065
  10. RITUXIMAB [Concomitant]
     Route: 065
     Dates: start: 20071008, end: 20071203
  11. LANTUS [Concomitant]
     Dosage: 140-170 UNITS
     Route: 058
  12. LOMOTIL [Concomitant]
     Route: 048
  13. LORTAB [Concomitant]
     Indication: PAIN
     Route: 048
  14. MAGNESIUM OXIDE [Concomitant]
     Route: 048
  15. OS-CAL PLUS D [Concomitant]
     Route: 048
  16. FLUOXETINE [Concomitant]
     Route: 048
  17. THERAGRAN-M [Concomitant]
     Route: 065
  18. DARIFENACIN [Concomitant]
     Route: 048
  19. FERROUS SULFATE [Concomitant]
     Route: 048
  20. TRIAMCINOLONE [Concomitant]
     Dosage: 1 SPRAY EACH NOSTRIL
     Route: 045
  21. TUMS [Concomitant]
     Route: 065
  22. RED BLOOD CELLS [Concomitant]
     Dosage: 2 UNITS
     Route: 051
     Dates: start: 20080510, end: 20080510
  23. RED BLOOD CELLS [Concomitant]
     Dosage: 1 UNIT
     Route: 051
     Dates: start: 20100301, end: 20100301
  24. AUGMENTIN '125' [Concomitant]
     Route: 065
     Dates: start: 20080201
  25. AUGMENTIN '125' [Concomitant]
     Route: 065
     Dates: start: 20100303, end: 20100305
  26. CIPRO [Concomitant]
     Route: 048
     Dates: start: 20080201
  27. CIPRO [Concomitant]
     Route: 065
     Dates: start: 20080303, end: 20080305
  28. VALTREX [Concomitant]
     Route: 065
     Dates: start: 20080201
  29. FLUCONAZOLE [Concomitant]
     Route: 048
     Dates: start: 20080227, end: 20080303
  30. OMEPRAZOLE [Concomitant]
     Route: 048
  31. DAPSONE [Concomitant]
     Route: 048
     Dates: start: 20080229, end: 20080302
  32. OXYCODONE HCL AND ACETAMINOPHEN [Concomitant]
     Indication: DISCOMFORT
     Dosage: 5/325 MG
     Route: 048
  33. PROCHLORPERAZINE [Concomitant]
     Indication: NAUSEA
     Route: 048
  34. PROCHLORPERAZINE [Concomitant]
     Dosage: 5-10MG
     Route: 051
  35. NOVOLIN R [Concomitant]
     Dosage: 15 UNITS
     Route: 058
  36. MULTI-VITAMINS [Concomitant]
     Route: 048
  37. OXYGEN [Concomitant]
     Route: 055
  38. ZOSYN [Concomitant]
     Route: 065
     Dates: start: 20080227, end: 20080303
  39. ZOSYN [Concomitant]
     Route: 065
     Dates: start: 20100305
  40. ATOVAQUONE [Concomitant]
     Route: 065
     Dates: start: 20100303
  41. CASPOFUNGIN [Concomitant]
     Route: 065
     Dates: start: 20100306
  42. NOVOLOG [Concomitant]
     Dosage: SLIDING SCALE
     Route: 065
  43. HYDROCODONE BITARTRATE [Concomitant]
     Indication: DISCOMFORT
     Route: 065
  44. FENTANYL-100 [Concomitant]
     Indication: DISCOMFORT
     Dosage: 75-100MCG
     Route: 062
  45. JANUVIA [Concomitant]
     Route: 065
  46. COLACE [Concomitant]
     Route: 065
  47. SENNA [Concomitant]
     Route: 065
  48. SORBITOL [Concomitant]
     Route: 065
  49. ENOXAPARIN SODIUM [Concomitant]
     Route: 058
  50. BYSTOLIC [Concomitant]
     Route: 065
  51. LASIX [Concomitant]
     Route: 065
  52. NEOMYCIN [Concomitant]
     Route: 065
  53. VASOLINE [Concomitant]
     Route: 065
  54. POTASSIUM CHLORIDE [Concomitant]
     Route: 065
  55. LOPRESSOR [Concomitant]
     Route: 048
  56. ZOCOR [Concomitant]
     Route: 048
  57. ATROVENT [Concomitant]
     Route: 048
  58. PROVENTIL [Concomitant]
     Route: 048
  59. TRIPLE ANTIBIOTIC OINTMENT [Concomitant]
     Route: 061
  60. ACETAMINOPHEN [Concomitant]
     Route: 065
  61. AMBIEN [Concomitant]
     Route: 065
  62. CARDIZEM [Concomitant]
     Route: 041
  63. NEOSPORIN [Concomitant]
     Route: 061
  64. PROTONIX [Concomitant]
     Route: 065
  65. LEVAQUIN [Concomitant]
     Route: 051
  66. INVANZ [Concomitant]
     Route: 051
  67. CLINDAMYCIN [Concomitant]
     Route: 051
  68. NITROGLYCERIN [Concomitant]
     Route: 051
  69. WARFARIN SODIUM [Concomitant]
     Route: 051
  70. HEPARIN [Concomitant]
     Route: 051
  71. DRONEDARONE [Concomitant]
     Route: 051
  72. VITAMIN K TAB [Concomitant]
     Route: 051
  73. VITAMIN K TAB [Concomitant]
     Route: 048
  74. MORPHINE [Concomitant]
     Route: 051
  75. MORPHINE [Concomitant]
     Route: 048
  76. ASPIRIN [Concomitant]
     Route: 065

REACTIONS (13)
  - ACUTE MYOCARDIAL INFARCTION [None]
  - ATRIAL FIBRILLATION [None]
  - BRADYCARDIA [None]
  - ENTEROCOCCAL INFECTION [None]
  - HYPOGLYCAEMIA [None]
  - MULTI-ORGAN FAILURE [None]
  - PALPITATIONS [None]
  - PANCYTOPENIA [None]
  - PNEUMONIA [None]
  - PNEUMONIA FUNGAL [None]
  - RENAL FAILURE ACUTE [None]
  - SEPSIS [None]
  - VENOOCCLUSIVE DISEASE [None]
